FAERS Safety Report 9386807 (Version 1)
Quarter: 2013Q3

REPORT INFORMATION
  Report Type: Spontaneous
  Country: FR (occurrence: FR)
  Receive Date: 20130708
  Receipt Date: 20130708
  Transmission Date: 20140515
  Serious: Yes (Other)
  Sender: FDA-Public Use
  Company Number: FR-TEVA-403481ISR

PATIENT
  Age: 46 Year
  Sex: Female

DRUGS (1)
  1. COPAXONE [Suspect]
     Indication: MULTIPLE SCLEROSIS
     Dosage: 1 DOSAGE FORMS DAILY; WITH THE AUTOJECT (DEPTH 8MM)
     Route: 058
     Dates: start: 20130415

REACTIONS (7)
  - Blindness unilateral [Recovering/Resolving]
  - Feeling cold [Not Recovered/Not Resolved]
  - Renal pain [Recovered/Resolved]
  - Injection site erythema [Unknown]
  - Therapeutic response unexpected [Not Recovered/Not Resolved]
  - Dysuria [Recovered/Resolved]
  - Muscular weakness [Recovering/Resolving]
